FAERS Safety Report 8974299 (Version 2)
Quarter: 2013Q2

REPORT INFORMATION
  Report Type: Spontaneous
  Country: GB (occurrence: None)
  Receive Date: 20121214
  Receipt Date: 20130618
  Transmission Date: 20140414
  Serious: Yes (Hospitalization)
  Sender: FDA-Public Use
  Company Number: DSA_61346_2012

PATIENT
  Age: 74 Year
  Sex: Male

DRUGS (14)
  1. 5-FU [Suspect]
     Indication: COLORECTAL CANCER METASTATIC
     Dosage: (1800 MG/M2,  EVERY OTHER WEEK  INTRAVENOUS (NOT OTHERWISE SPECIFIED)),?11/16/2012  TO  11/16/2012
     Route: 041
     Dates: start: 20121116, end: 20121116
  2. AFLIBERCEPT [Suspect]
     Indication: COLORECTAL CANCER METASTATIC
     Dosage: (4 MG/KG, EVERY OTHER WEEK  INTRAVENOUS  (NOT OTHERWISE SPECIFIED))?(10/24/2012 TO 10/24/2012)
     Route: 042
     Dates: start: 20121024, end: 20121024
  3. IRINOTECAN [Suspect]
     Indication: COLORECTAL CANCER METASTATIC
     Dosage: (135 MG/M2,  EVERY OTHER WEEK  INTRAVENOUS  (NOT OTHERWISE SPECIFIED))?(11/16/2012  TO  11/16/2012)
     Route: 042
     Dates: start: 20121116, end: 20121116
  4. LEUCOVORIN [Suspect]
     Indication: COLORECTAL CANCER METASTATIC
     Dosage: (400 MG/M2,  EVERY OTHER WEEK  INTRAVENOUS  (NOT OTHERWISE SPECIFIED))?(11/16/2012  TO  11/16/2012)
     Route: 042
     Dates: start: 20121116, end: 20121116
  5. CYCLIZINE [Concomitant]
  6. LOPERAMIDE [Concomitant]
  7. CODEINE PHOSPHATE [Concomitant]
  8. SEROTONIN ANTAGONISTS [Concomitant]
  9. HEPARIN GROUP [Concomitant]
  10. MACROGOL [Concomitant]
  11. ANTIBIOTICS [Concomitant]
  12. NORMAL SALINE [Concomitant]
  13. METOCLOPRAMIDE [Concomitant]
  14. ANALGESICS [Concomitant]

REACTIONS (1)
  - Vomiting [None]
